FAERS Safety Report 4281090-6 (Version None)
Quarter: 2004Q1

REPORT INFORMATION
  Report Type: 
  Country: None (occurrence: None)
  Receive Date: 20040127
  Receipt Date: 20040115
  Transmission Date: 20041129
  Serious: Yes (Hospitalization)
  Sender: FDA-Public Use
  Company Number: 2004-DE-00298YA

PATIENT
  Sex: Male

DRUGS (1)
  1. HARNAL (TAMSULOSIN) (TAMSULOSIN HYDROCHLORIDE) [Suspect]
     Dosage: PO
     Route: 048

REACTIONS (2)
  - INTERSTITIAL LUNG DISEASE [None]
  - RHABDOMYOLYSIS [None]
